FAERS Safety Report 6576902-7 (Version None)
Quarter: 2010Q1

REPORT INFORMATION
  Report Type: 
  Country: None (occurrence: None)
  Receive Date: 20100210
  Receipt Date: 20100205
  Transmission Date: 20100710
  Serious: Yes (Hospitalization)
  Sender: FDA-Public Use
  Company Number: B0625931A

PATIENT
  Sex: Female

DRUGS (6)
  1. LAMICTAL [Suspect]
     Indication: BIPOLAR I DISORDER
     Route: 048
     Dates: start: 20080812, end: 20100113
  2. LIVALO [Concomitant]
     Dosage: 2MG PER DAY
     Route: 048
     Dates: start: 20080529
  3. AMARYL [Concomitant]
     Indication: DIABETES MELLITUS
     Dosage: 3MG PER DAY
     Route: 048
     Dates: start: 20080327
  4. GLYCORAN [Concomitant]
     Indication: DIABETES MELLITUS
     Dosage: 500MG PER DAY
     Route: 048
     Dates: start: 20080221
  5. LIMAS [Concomitant]
     Indication: BIPOLAR DISORDER
     Dosage: 800MG PER DAY
     Route: 048
     Dates: start: 20081027
  6. METHYLCOBAL [Concomitant]
     Indication: PERIPHERAL NERVE LESION
     Dosage: 1500MCG PER DAY
     Route: 048
     Dates: start: 20090916

REACTIONS (4)
  - ABORTION SPONTANEOUS [None]
  - DRUG EXPOSURE DURING PREGNANCY [None]
  - HAEMORRHAGE [None]
  - MUSCLE CONTRACTURE [None]
